FAERS Safety Report 10176981 (Version 1)
Quarter: 2014Q2

REPORT INFORMATION
  Report Type: Spontaneous
  Country: CA (occurrence: None)
  Receive Date: 20140515
  Receipt Date: 20140515
  Transmission Date: 20141212
  Serious: Yes (Hospitalization)
  Sender: FDA-Public Use
  Company Number: None

PATIENT
  Age: 51 Year
  Sex: Male
  Weight: 137 kg

DRUGS (1)
  1. ERBITUX [Suspect]

REACTIONS (4)
  - Dizziness [None]
  - Asthenia [None]
  - Dyspnoea [None]
  - Electrolyte imbalance [None]
